FAERS Safety Report 22116307 (Version 1)
Quarter: 2023Q1

REPORT INFORMATION
  Report Type: Spontaneous
  Country: US (occurrence: US)
  Receive Date: 20230320
  Receipt Date: 20230320
  Transmission Date: 20230417
  Serious: Yes (Other)
  Sender: FDA-Public Use
  Company Number: US-SA-SAC20230317001353

PATIENT
  Age: 20 Year
  Sex: Male

DRUGS (1)
  1. DUPIXENT [Suspect]
     Active Substance: DUPILUMAB
     Dosage: 15MG BID
     Route: 048

REACTIONS (4)
  - Hallucination [Recovering/Resolving]
  - Photopsia [Recovering/Resolving]
  - Incorrect dose administered [Unknown]
  - Incorrect route of product administration [Unknown]
